FAERS Safety Report 7743457-0 (Version None)
Quarter: 2011Q3

REPORT INFORMATION
  Report Type: 
  Country: None (occurrence: None)
  Receive Date: 20110906
  Receipt Date: 20110830
  Transmission Date: 20111222
  Serious: Yes (Hospitalization)
  Sender: FDA-Public Use
  Company Number: 2011SP041038

PATIENT
  Age: 52 Year
  Sex: Female

DRUGS (4)
  1. KLONOPIN [Concomitant]
  2. LAMICTAL [Concomitant]
  3. EFFEXOR [Concomitant]
  4. SAPHRIS [Suspect]
     Indication: BIPOLAR DISORDER
     Dosage: BID;SL
     Route: 060
     Dates: start: 20110801, end: 20110801

REACTIONS (2)
  - DYSPHEMIA [None]
  - NEUROLOGICAL SYMPTOM [None]
